FAERS Safety Report 9719756 (Version 2)
Quarter: 2018Q4

REPORT INFORMATION
  Report Type: Report from Study
  Country: US (occurrence: US)
  Receive Date: 20131128
  Receipt Date: 20181220
  Transmission Date: 20190205
  Serious: Yes (Other)
  Sender: FDA-Public Use
  Company Number: US-ROCHE-1309780

PATIENT

DRUGS (1)
  1. DIAZEPAM. [Suspect]
     Active Substance: DIAZEPAM
     Indication: SEIZURE
     Dosage: 5MG/ML
     Route: 030
     Dates: start: 200601, end: 201112

REACTIONS (1)
  - Gait disturbance [Unknown]
